FAERS Safety Report 16924537 (Version 1)
Quarter: 2019Q4

REPORT INFORMATION
  Report Type: Spontaneous
  Country: US (occurrence: US)
  Receive Date: 20191016
  Receipt Date: 20191016
  Transmission Date: 20200122
  Serious: Yes (Life-Threatening, Hospitalization)
  Sender: FDA-Public Use
  Company Number: US-MYLANLABS-2019M1097720

PATIENT
  Age: 23 Year
  Sex: Male

DRUGS (3)
  1. LEVOTHYROXINE. [Suspect]
     Active Substance: LEVOTHYROXINE
     Indication: PRODUCT USED FOR UNKNOWN INDICATION
     Dosage: RECEIVED UNSPECIFIED NUMBERS OF LEVOTHYROXINE SODIUM
     Route: 065
  2. MECLIZINE [Suspect]
     Active Substance: MECLIZINE HYDROCHLORIDE
     Indication: PRODUCT USED FOR UNKNOWN INDICATION
     Dosage: RECEIVED UNSPECIFIED NUMBERS OF LEVOTHYROXINE SODIUM
     Route: 065
  3. AMLODIPINE [Suspect]
     Active Substance: AMLODIPINE BESYLATE
     Indication: PRODUCT USED FOR UNKNOWN INDICATION
     Dosage: TOOK MORE THAN ONE HUNDRED TABLETS
     Route: 065

REACTIONS (6)
  - Suicide attempt [Recovering/Resolving]
  - Intentional overdose [Recovering/Resolving]
  - Respiratory distress [Unknown]
  - Tachycardia [Recovering/Resolving]
  - Hypotension [Recovering/Resolving]
  - Pulmonary oedema [Unknown]
